FAERS Safety Report 9050661 (Version 5)
Quarter: 2013Q4

REPORT INFORMATION
  Report Type: Spontaneous
  Country: US (occurrence: DE)
  Receive Date: 20130205
  Receipt Date: 20131104
  Transmission Date: 20140711
  Serious: Yes (Death, Life-Threatening)
  Sender: FDA-Public Use
  Company Number: DE-FRI-1000042431

PATIENT
  Age: 63 Year
  Sex: Male
  Weight: 62 kg

DRUGS (21)
  1. CEFTAROLINE FOSAMIL [Suspect]
     Indication: STAPHYLOCOCCAL INFECTION
     Dosage: 1200 MG
     Route: 042
     Dates: start: 20130126
  2. ASS 100 [Concomitant]
     Dosage: 1 DF
  3. BRILIQUE [Concomitant]
  4. SIMVASTATIN [Concomitant]
     Dosage: 20 MG
  5. DELIX [Concomitant]
     Dosage: 2.5 MG
  6. TOREM [Concomitant]
     Dosage: 20 MG
  7. CONCOR [Concomitant]
     Dosage: 5 MG
  8. INSPRA [Concomitant]
     Dosage: 25 MG
  9. FOLSAN [Concomitant]
     Dosage: 10 MG
  10. ALLOPURINOL [Concomitant]
     Dosage: 300 MG
  11. SIOFAR [Concomitant]
     Dosage: 1000 MG
  12. AMARYL [Concomitant]
     Dosage: 2 MG
  13. EDRONAX [Concomitant]
     Dosage: 8 MG
  14. PANTOZOL [Concomitant]
     Dosage: 80 MG
  15. GABAPENTIN [Concomitant]
     Dosage: 900 MG
  16. NOVALGIN [Concomitant]
     Dosage: 2000 MG
  17. TALVOSILEN [Concomitant]
     Dosage: 3 DF
  18. CALCIUM BRAUSE [Concomitant]
     Dosage: 2 DF
  19. ZYVOXID [Concomitant]
     Dosage: 1200 MG
  20. PRELIS [Concomitant]
     Dosage: 180 MG
  21. MONOEMBOLEX [Concomitant]
     Dosage: 3000 IU

REACTIONS (8)
  - Death [Fatal]
  - Troponin increased [Recovered/Resolved]
  - Creatinine renal clearance increased [Unknown]
  - Chest pain [Unknown]
  - Nausea [Unknown]
  - Anaemia [Unknown]
  - Transaminases increased [Unknown]
  - Vomiting [Recovered/Resolved]
